FAERS Safety Report 20826181 (Version 1)
Quarter: 2022Q2

REPORT INFORMATION
  Report Type: Spontaneous
  Country: CN (occurrence: CN)
  Receive Date: 20220513
  Receipt Date: 20220513
  Transmission Date: 20220721
  Serious: Yes (Other)
  Sender: FDA-Public Use
  Company Number: CN-PFIZER INC-202200679477

PATIENT
  Age: 56 Year
  Sex: Male
  Weight: 60 kg

DRUGS (8)
  1. IRINOTECAN HYDROCHLORIDE [Suspect]
     Active Substance: IRINOTECAN HYDROCHLORIDE
     Indication: Rectal cancer
     Dosage: 320 MG, 1X/DAY
     Route: 041
     Dates: start: 20220429, end: 20220429
  2. FLUOROURACIL [Suspect]
     Active Substance: FLUOROURACIL
     Indication: Rectal cancer
     Dosage: 4.2 G, 1X/DAY
     Route: 041
     Dates: start: 20220429, end: 20220429
  3. FLUOROURACIL [Suspect]
     Active Substance: FLUOROURACIL
     Dosage: 0.7 G, 1X/DAY
     Route: 041
     Dates: start: 20220429, end: 20220429
  4. LEUCOVORIN CALCIUM [Suspect]
     Active Substance: LEUCOVORIN CALCIUM
     Dosage: 700.000 MG, 1X/DAY
     Route: 041
     Dates: start: 20220429, end: 20220429
  5. SODIUM CHLORIDE [Concomitant]
     Active Substance: SODIUM CHLORIDE
     Indication: Vehicle solution use
     Dosage: 180 ML, 1X/DAY
     Route: 041
     Dates: start: 20220429, end: 20220429
  6. SODIUM CHLORIDE [Concomitant]
     Active Substance: SODIUM CHLORIDE
     Dosage: 50 ML, 1X/DAY
     Route: 041
     Dates: start: 20220429, end: 20220429
  7. SODIUM CHLORIDE [Concomitant]
     Active Substance: SODIUM CHLORIDE
     Dosage: 500 ML, 1X/DAY
     Route: 041
     Dates: start: 20220429, end: 20220429
  8. DEXTROSE [Concomitant]
     Active Substance: DEXTROSE
     Indication: Vehicle solution use
     Dosage: 250 ML, 1X/DAY
     Route: 041
     Dates: start: 20220429, end: 20220429

REACTIONS (3)
  - Asthenia [Recovering/Resolving]
  - Decreased appetite [Recovering/Resolving]
  - Nausea [Recovering/Resolving]

NARRATIVE: CASE EVENT DATE: 20220502
